FAERS Safety Report 11786529 (Version 1)
Quarter: 2015Q4

REPORT INFORMATION
  Report Type: Spontaneous
  Country: US (occurrence: US)
  Receive Date: 20151130
  Receipt Date: 20151130
  Transmission Date: 20160305
  Serious: Yes (Life-Threatening, Hospitalization, Other)
  Sender: FDA-Public Use
  Company Number: US-BIOCOMPATIBLES UK LTD-BTG00485

PATIENT

DRUGS (1)
  1. CROFAB [Suspect]
     Active Substance: CROTALIDAE POLYVALENT IMMUNE FAB (OVINE)
     Indication: SNAKE BITE
     Dosage: 16 VIALS TOTAL
     Dates: start: 20150607

REACTIONS (8)
  - Pain [Unknown]
  - Platelet count decreased [Unknown]
  - Swelling [Recovering/Resolving]
  - Blister [Unknown]
  - Hypotension [Recovering/Resolving]
  - Blood fibrinogen decreased [Recovering/Resolving]
  - Blood pressure increased [Unknown]
  - Heart rate decreased [Unknown]

NARRATIVE: CASE EVENT DATE: 20150607
